FAERS Safety Report 5840001-X (Version None)
Quarter: 2008Q3

REPORT INFORMATION
  Report Type: 
  Country: None (occurrence: None)
  Receive Date: 20080811
  Receipt Date: 20080728
  Transmission Date: 20090109
  Serious: Yes (Death)
  Sender: FDA-Public Use
  Company Number: TR-NOVOPROD-278108

PATIENT

DRUGS (2)
  1. ACTRAPID HM PENFILL [Suspect]
     Indication: DRUG USE FOR UNKNOWN INDICATION
     Dosage: 36 IU, QD
     Route: 064
     Dates: start: 20080225
  2. INSULATARD HM PENFILL [Suspect]
     Indication: DRUG USE FOR UNKNOWN INDICATION
     Dosage: 12 IU, QD
     Route: 064
     Dates: start: 20080225

REACTIONS (1)
  - CARDIOVASCULAR DISORDER [None]
